FAERS Safety Report 15720196 (Version 1)
Quarter: 2018Q4

REPORT INFORMATION
  Report Type: Spontaneous
  Country: US (occurrence: US)
  Receive Date: 20181213
  Receipt Date: 20181213
  Transmission Date: 20190205
  Serious: Yes (Other)
  Sender: FDA-Public Use
  Company Number: PHHY2018US178869

PATIENT
  Age: 53 Year
  Sex: Male

DRUGS (7)
  1. NAFCILLIN [Interacting]
     Active Substance: NAFCILLIN\NAFCILLIN SODIUM
     Dosage: 28 MG, QW
     Route: 065
  2. WARFARIN [Interacting]
     Active Substance: WARFARIN
     Indication: DEEP VEIN THROMBOSIS
     Dosage: 20-26 MG, QW
     Route: 065
  3. WARFARIN [Interacting]
     Active Substance: WARFARIN
     Indication: PULMONARY EMBOLISM
     Dosage: 24 MG, QW
     Route: 065
  4. WARFARIN [Interacting]
     Active Substance: WARFARIN
     Dosage: 56 MG, QW
     Route: 065
  5. NAFCILLIN [Suspect]
     Active Substance: NAFCILLIN\NAFCILLIN SODIUM
     Indication: POSTOPERATIVE WOUND INFECTION
     Dosage: 30 MG, QW
     Route: 065
  6. WARFARIN [Interacting]
     Active Substance: WARFARIN
     Dosage: 28 UNK, UNK
     Route: 065
  7. NAFCILLIN [Interacting]
     Active Substance: NAFCILLIN\NAFCILLIN SODIUM
     Dosage: 56 MG, QW
     Route: 065

REACTIONS (2)
  - International normalised ratio abnormal [Unknown]
  - Drug interaction [Unknown]
